FAERS Safety Report 23317820 (Version 1)
Quarter: 2023Q4

REPORT INFORMATION
  Report Type: Spontaneous
  Country: US (occurrence: None)
  Receive Date: 20231219
  Receipt Date: 20231219
  Transmission Date: 20240109
  Serious: Yes (Hospitalization)
  Sender: FDA-Public Use
  Company Number: US-ROCHE-3353118

PATIENT
  Age: 67 Year
  Sex: Male
  Weight: 78.9 kg

DRUGS (6)
  1. GAZYVA [Suspect]
     Active Substance: OBINUTUZUMAB
     Indication: Chronic lymphocytic leukaemia
     Dosage: ADMINISTERED DAY 1 ;ONGOING: UNKNOWN
     Route: 041
     Dates: start: 20230509, end: 20230509
  2. GAZYVA [Suspect]
     Active Substance: OBINUTUZUMAB
     Dosage: ADMINISTERED DAY 2 ;ONGOING: UNKNOWN
     Route: 041
  3. RIVAROXABAN [Concomitant]
     Active Substance: RIVAROXABAN
     Dosage: ONGOING - YES
     Route: 048
     Dates: start: 20220803
  4. ALLOPURINOL [Concomitant]
     Active Substance: ALLOPURINOL
     Dosage: 300 MG DAILY ONGOING - YES
     Route: 048
     Dates: start: 20230508
  5. ACYCLOVIR [Concomitant]
     Active Substance: ACYCLOVIR
     Indication: Prophylaxis
     Dosage: 300 MG DAILY ONGOING - YES
     Route: 048
     Dates: start: 20230509
  6. DEXAMETHASONE [Concomitant]
     Active Substance: DEXAMETHASONE
     Indication: Chronic lymphocytic leukaemia
     Dosage: ONCE ONGOING - YES
     Route: 042
     Dates: start: 20230509, end: 20230509

REACTIONS (3)
  - Chills [Recovered/Resolved]
  - Pyrexia [Recovered/Resolved]
  - Blood bilirubin increased [Unknown]

NARRATIVE: CASE EVENT DATE: 20230509
